FAERS Safety Report 16349156 (Version 1)
Quarter: 2019Q2

REPORT INFORMATION
  Report Type: Spontaneous
  Country: GB (occurrence: GB)
  Receive Date: 20190523
  Receipt Date: 20190523
  Transmission Date: 20190711
  Serious: Yes (Disabling)
  Sender: FDA-Public Use
  Company Number: GB-CELGENEUS-GBR-20190507703

PATIENT
  Age: 64 Year
  Sex: Female
  Weight: 48.7 kg

DRUGS (1)
  1. AZACITIDINE. [Suspect]
     Active Substance: AZACITIDINE
     Indication: MYELODYSPLASTIC SYNDROME
     Dosage: 75 MILLIGRAM/SQ. METER
     Route: 058
     Dates: start: 20160307

REACTIONS (1)
  - Neuropathy peripheral [Not Recovered/Not Resolved]

NARRATIVE: CASE EVENT DATE: 201808
